FAERS Safety Report 5012409-6 (Version None)
Quarter: 2006Q2

REPORT INFORMATION
  Report Type: 
  Country: None (occurrence: None)
  Receive Date: 20060414
  Receipt Date: 20060117
  Transmission Date: 20061013
  Serious: No
  Sender: FDA-Public Use
  Company Number: 2006SP000302

PATIENT
  Age: 51 Year
  Sex: Female

DRUGS (6)
  1. LUNESTA [Suspect]
     Indication: INSOMNIA
     Dosage: 3 MG;HS;ORAL
     Route: 048
     Dates: start: 20051209, end: 20051212
  2. PROCARDIA [Concomitant]
  3. VALSARTAN [Concomitant]
  4. CELEBREX [Concomitant]
  5. XANAX [Concomitant]
  6. CYMBALTA [Concomitant]

REACTIONS (1)
  - DYSGEUSIA [None]
